FAERS Safety Report 20864060 (Version 2)
Quarter: 2022Q4

REPORT INFORMATION
  Report Type: Spontaneous
  Country: US (occurrence: US)
  Receive Date: 20220523
  Receipt Date: 20221118
  Transmission Date: 20230113
  Serious: Yes (Other)
  Sender: FDA-Public Use
  Company Number: US-JAZZ-2022-US-016893

PATIENT
  Sex: Female
  Weight: 83.01 kg

DRUGS (5)
  1. ZEPZELCA [Suspect]
     Active Substance: LURBINECTEDIN
     Indication: Product used for unknown indication
     Dosage: CYCLE1
  2. ZEPZELCA [Suspect]
     Active Substance: LURBINECTEDIN
     Dosage: CYCLE2
  3. ZEPZELCA [Suspect]
     Active Substance: LURBINECTEDIN
     Dosage: CYCLE3
  4. ZEPZELCA [Suspect]
     Active Substance: LURBINECTEDIN
     Dosage: CYCLE4
  5. PLATINUM [Suspect]
     Active Substance: PLATINUM
     Indication: Small cell lung cancer
     Dosage: UNK

REACTIONS (3)
  - Small cell lung cancer metastatic [Unknown]
  - Platelet count decreased [Unknown]
  - Unevaluable event [Unknown]
